FAERS Safety Report 8248096-3 (Version None)
Quarter: 2012Q1

REPORT INFORMATION
  Report Type: 
  Country: None (occurrence: None)
  Receive Date: 20120330
  Receipt Date: 20120319
  Transmission Date: 20120608
  Serious: Yes (Life-Threatening, Hospitalization)
  Sender: FDA-Public Use
  Company Number: JP-JNJFOC-20101100756

PATIENT
  Age: 57 Year
  Sex: Female
  Weight: 52 kg

DRUGS (36)
  1. METHOTREXATE [Suspect]
     Route: 048
     Dates: start: 20100205, end: 20100315
  2. CELEBREX [Concomitant]
     Indication: PSORIATIC ARTHROPATHY
     Route: 048
     Dates: end: 20100617
  3. ALLEGRA [Concomitant]
     Indication: PROPHYLAXIS
     Route: 048
     Dates: end: 20100426
  4. PREDNISOLONE [Concomitant]
     Indication: PSORIATIC ARTHROPATHY
     Route: 048
     Dates: start: 20100617, end: 20100617
  5. METHOTREXATE [Suspect]
     Route: 048
     Dates: start: 20090826
  6. METHOTREXATE [Suspect]
     Route: 048
     Dates: start: 20100315, end: 20100328
  7. PREDNISOLONE [Concomitant]
     Route: 048
     Dates: start: 20100611, end: 20100611
  8. PREDNISOLONE [Concomitant]
     Indication: PSORIATIC ARTHROPATHY
     Route: 048
     Dates: start: 20100622, end: 20100624
  9. AZULFIDINE [Concomitant]
     Indication: PSORIATIC ARTHROPATHY
     Route: 048
     Dates: start: 20100730
  10. METHOTREXATE [Suspect]
     Route: 048
     Dates: start: 20090930
  11. METHOTREXATE [Suspect]
     Route: 048
     Dates: start: 20100329, end: 20100425
  12. PREDNISOLONE [Concomitant]
     Route: 048
     Dates: start: 20100620, end: 20100621
  13. PREDNISOLONE [Concomitant]
     Route: 048
     Dates: start: 20100622, end: 20100624
  14. PREDNISOLONE [Concomitant]
     Route: 048
     Dates: start: 20100709
  15. ACTONEL [Concomitant]
     Indication: PROPHYLAXIS
     Route: 048
     Dates: start: 20100709
  16. ATARAX [Concomitant]
     Indication: PSORIATIC ARTHROPATHY
     Route: 048
     Dates: start: 20100426, end: 20100509
  17. RABEPRAZOLE SODIUM [Concomitant]
     Indication: PROPHYLAXIS
     Route: 048
  18. FOLIC ACID [Concomitant]
     Indication: PROPHYLAXIS
     Route: 048
     Dates: end: 20100610
  19. PREDNISOLONE [Concomitant]
     Route: 048
     Dates: start: 20100614, end: 20100616
  20. REMICADE [Suspect]
     Route: 042
     Dates: start: 20100329
  21. REMICADE [Suspect]
     Route: 042
     Dates: start: 20100315
  22. NEOISCOTIN [Concomitant]
     Indication: ANTIBIOTIC PROPHYLAXIS
     Route: 048
     Dates: start: 20100305, end: 20100610
  23. DOVONEX [Concomitant]
     Indication: PSORIATIC ARTHROPATHY
     Route: 061
  24. DEPAS [Concomitant]
     Indication: ANXIETY DISORDER
     Route: 048
     Dates: start: 20100611, end: 20100714
  25. MUCOSTA [Concomitant]
     Indication: PROPHYLAXIS
     Route: 048
     Dates: start: 20100611, end: 20100704
  26. METHOTREXATE [Suspect]
     Indication: PSORIATIC ARTHROPATHY
     Route: 048
     Dates: start: 20090805
  27. DEPAS [Concomitant]
     Route: 048
     Dates: start: 20100521, end: 20100523
  28. PREDNISOLONE [Concomitant]
     Route: 048
     Dates: start: 20100618, end: 20100619
  29. PREDNISOLONE [Concomitant]
     Route: 048
     Dates: start: 20100625, end: 20100708
  30. AZULFIDINE [Concomitant]
     Route: 048
     Dates: start: 20100709, end: 20100729
  31. REMICADE [Suspect]
     Indication: PSORIATIC ARTHROPATHY
     Route: 042
     Dates: start: 20100426
  32. METHOTREXATE [Suspect]
     Route: 048
     Dates: start: 20091204
  33. PYRIDOXAL PHOSPHATE [Concomitant]
     Indication: PROPHYLAXIS
     Route: 048
     Dates: end: 20100617
  34. ACETAMINOPHEN [Concomitant]
     Indication: PROPHYLAXIS
     Route: 048
     Dates: end: 20100426
  35. METHOTREXATE [Suspect]
     Route: 048
     Dates: start: 20091028
  36. METHOTREXATE [Suspect]
     Route: 048
     Dates: start: 20100426, end: 20100610

REACTIONS (1)
  - PNEUMOCYSTIS JIROVECI PNEUMONIA [None]
